FAERS Safety Report 13908651 (Version 1)
Quarter: 2017Q3

REPORT INFORMATION
  Report Type: Report from Study
  Country: CN (occurrence: CN)
  Receive Date: 20170827
  Receipt Date: 20170827
  Transmission Date: 20171127
  Serious: Yes (Other)
  Sender: FDA-Public Use
  Company Number: CN-GLAXOSMITHKLINE-CN2017GSK130756

PATIENT

DRUGS (6)
  1. LAMIVUDINE. [Suspect]
     Active Substance: LAMIVUDINE
     Indication: HIV INFECTION
     Dosage: 3TC+AZT+EFV
     Dates: start: 20141028
  2. EFAVIRENZ [Suspect]
     Active Substance: EFAVIRENZ
     Dosage: 3TC+TDF+EFV
     Dates: start: 20141028
  3. TENOFOVIR DISOPROXIL FUMARATE. [Concomitant]
     Active Substance: TENOFOVIR DISOPROXIL FUMARATE
     Indication: HIV INFECTION
     Dosage: 3TC+TDF+EFV
     Dates: start: 20141028
  4. AZIDOTHYMIDINE [Concomitant]
     Active Substance: ZIDOVUDINE
     Indication: HIV INFECTION
     Dosage: 3TC+AZT+EFV
     Dates: start: 20141028
  5. EFAVIRENZ [Suspect]
     Active Substance: EFAVIRENZ
     Indication: HIV INFECTION
     Dosage: 3TC+AZT+EFV
     Dates: start: 20141028
  6. LAMIVUDINE. [Suspect]
     Active Substance: LAMIVUDINE
     Dosage: 3TC+TDF+EFV
     Dates: start: 20141028

REACTIONS (3)
  - Pathogen resistance [Unknown]
  - Drug resistance [Unknown]
  - Viral mutation identified [Unknown]
